FAERS Safety Report 21258291 (Version 1)
Quarter: 2022Q3

REPORT INFORMATION
  Report Type: Report from Study
  Country: CA (occurrence: CA)
  Receive Date: 20220826
  Receipt Date: 20220826
  Transmission Date: 20221027
  Serious: Yes (Other)
  Sender: FDA-Public Use
  Company Number: CA-CELLTRION INC.-2022CA013916

PATIENT

DRUGS (1)
  1. TRUXIMA [Suspect]
     Active Substance: RITUXIMAB-ABBS
     Indication: Immune thrombocytopenia
     Dosage: 900 MG (ROUNDED) WEEKLY X 4 DOSES, TOTAL OF 3600 MG

REACTIONS (2)
  - Immune thrombocytopenia [Unknown]
  - Off label use [Unknown]
